FAERS Safety Report 9914654 (Version 1)
Quarter: 2014Q1

REPORT INFORMATION
  Report Type: Spontaneous
  Country: US (occurrence: US)
  Receive Date: 20140220
  Receipt Date: 20140220
  Transmission Date: 20141002
  Serious: Yes (Life-Threatening, Other)
  Sender: FDA-Public Use
  Company Number: US-BAYER-2014-025513

PATIENT
  Age: 72 Year
  Sex: Male

DRUGS (8)
  1. ACETYLSALICYLIC ACID({=100 MG) [Suspect]
  2. LITHIUM CARBONATE [Suspect]
     Indication: BIPOLAR DISORDER
     Dosage: 450 MG, EXTENDED RELEASE (ER) QHS
  3. LITHIUM CARBONATE [Suspect]
     Indication: BIPOLAR DISORDER
     Dosage: 300 MG/DAY
  4. LISINOPRIL [Suspect]
  5. DULOXETINE [Concomitant]
  6. PAROXETINE [Concomitant]
  7. METFORMIN [Concomitant]
  8. ARIPIPRAZOLE [Concomitant]

REACTIONS (7)
  - Toxicity to various agents [None]
  - Hypotension [None]
  - Hypothermia [None]
  - Bradycardia [None]
  - Apnoea [None]
  - Mental status changes [None]
  - Lobar pneumonia [None]
